FAERS Safety Report 13718489 (Version 2)
Quarter: 2017Q3

REPORT INFORMATION
  Report Type: Spontaneous
  Country: CO (occurrence: CO)
  Receive Date: 20170705
  Receipt Date: 20170711
  Transmission Date: 20171127
  Serious: Yes (Hospitalization)
  Sender: FDA-Public Use
  Company Number: CO-PFIZER INC-2017285245

PATIENT
  Age: 60 Year
  Sex: Female

DRUGS (14)
  1. PREDNISOLONE. [Concomitant]
     Active Substance: PREDNISOLONE
     Indication: POSTPARTUM HYPOPITUITARISM
  2. GENOTROPIN [Suspect]
     Active Substance: SOMATROPIN
     Indication: DYSLIPIDAEMIA
  3. GENOTROPIN [Suspect]
     Active Substance: SOMATROPIN
     Indication: DIABETES MELLITUS
  4. GENOTROPIN [Suspect]
     Active Substance: SOMATROPIN
     Indication: ASTHENIA
  5. GENOTROPIN [Suspect]
     Active Substance: SOMATROPIN
     Indication: HYPOTHYROIDISM
  6. PREDNISOLONE. [Concomitant]
     Active Substance: PREDNISOLONE
     Indication: HYPOPITUITARISM
  7. PREDNISOLONE. [Concomitant]
     Active Substance: PREDNISOLONE
     Indication: DIABETES MELLITUS
  8. GENOTROPIN [Suspect]
     Active Substance: SOMATROPIN
     Indication: HYPOPITUITARISM
     Dosage: 1.2 MG, UNK
     Route: 058
     Dates: end: 201612
  9. GENOTROPIN [Suspect]
     Active Substance: SOMATROPIN
     Indication: POSTPARTUM HYPOPITUITARISM
  10. PREDNISOLONE. [Concomitant]
     Active Substance: PREDNISOLONE
     Indication: DYSLIPIDAEMIA
  11. PREDNISOLONE. [Concomitant]
     Active Substance: PREDNISOLONE
     Indication: ASTHENIA
  12. GENOTROPIN [Suspect]
     Active Substance: SOMATROPIN
     Indication: HORMONE REPLACEMENT THERAPY
     Dosage: UNK
     Route: 058
     Dates: start: 2007, end: 201701
  13. GENOTROPIN [Suspect]
     Active Substance: SOMATROPIN
     Indication: GROWTH HORMONE DEFICIENCY
  14. PREDNISOLONE. [Concomitant]
     Active Substance: PREDNISOLONE
     Indication: HYPOTHYROIDISM

REACTIONS (8)
  - Aphasia [Not Recovered/Not Resolved]
  - Swelling face [Not Recovered/Not Resolved]
  - Pallor [Not Recovered/Not Resolved]
  - Gait disturbance [Not Recovered/Not Resolved]
  - Depression [Not Recovered/Not Resolved]
  - Yellow skin [Not Recovered/Not Resolved]
  - Eye swelling [Not Recovered/Not Resolved]
  - Pain [Not Recovered/Not Resolved]

NARRATIVE: CASE EVENT DATE: 201704
